FAERS Safety Report 23286153 (Version 2)
Quarter: 2023Q4

REPORT INFORMATION
  Report Type: Spontaneous
  Country: CA (occurrence: CA)
  Receive Date: 20231212
  Receipt Date: 20231227
  Transmission Date: 20240110
  Serious: No
  Sender: FDA-Public Use
  Company Number: CA-TOLMAR, INC.-23CA045137

PATIENT
  Age: 82 Year
  Sex: Male

DRUGS (2)
  1. ELIGARD [Suspect]
     Active Substance: LEUPROLIDE ACETATE
     Indication: Product used for unknown indication
     Dosage: 45 MILLIGRAM, Q 6 MONTH
     Dates: start: 20231123
  2. ELIGARD [Suspect]
     Active Substance: LEUPROLIDE ACETATE
     Indication: Product used for unknown indication
     Dosage: UNK

REACTIONS (4)
  - Wrong technique in product usage process [Unknown]
  - Intercepted product administration error [Unknown]
  - Syringe issue [Unknown]
  - Device leakage [Unknown]

NARRATIVE: CASE EVENT DATE: 20231123
